FAERS Safety Report 5088313-4 (Version None)
Quarter: 2006Q3

REPORT INFORMATION
  Report Type: 
  Country: None (occurrence: None)
  Receive Date: 20060821
  Receipt Date: 20060809
  Transmission Date: 20061208
  Serious: Yes (Life-Threatening, Hospitalization)
  Sender: FDA-Public Use
  Company Number: US-2006-017396

PATIENT
  Age: 65 Year
  Sex: Female
  Weight: 113.4 kg

DRUGS (2)
  1. ULTRAVIST (PHARMACY BULK) [Suspect]
     Indication: ARTERIOGRAM CORONARY
     Dosage: SEE IMAGE
     Route: 042
     Dates: start: 20060615, end: 20060615
  2. ULTRAVIST (PHARMACY BULK) [Suspect]
     Indication: ARTERIOGRAM CORONARY
     Dosage: SEE IMAGE
     Route: 042
     Dates: start: 20060615, end: 20060615

REACTIONS (7)
  - CONTRAST MEDIA REACTION [None]
  - DYSPHONIA [None]
  - DYSPNOEA [None]
  - INTUBATION COMPLICATION [None]
  - RESPIRATORY ARREST [None]
  - SWOLLEN TONGUE [None]
  - URTICARIA LOCALISED [None]
